FAERS Safety Report 6326289-X (Version None)
Quarter: 2009Q3

REPORT INFORMATION
  Report Type: 
  Country: None (occurrence: None)
  Receive Date: 20090821
  Receipt Date: 20090807
  Transmission Date: 20100115
  Serious: Yes (Other)
  Sender: FDA-Public Use
  Company Number: 001384

PATIENT
  Sex: Male

DRUGS (3)
  1. LACOSAMIDE [Suspect]
     Dosage: 50 MG QD ORAL
     Route: 048
  2. TRILEPTAL [Concomitant]
  3. LAMICTAL [Concomitant]

REACTIONS (2)
  - DROOLING [None]
  - SWOLLEN TONGUE [None]
